FAERS Safety Report 20231975 (Version 3)
Quarter: 2022Q3

REPORT INFORMATION
  Report Type: Spontaneous
  Country: US (occurrence: US)
  Receive Date: 20211227
  Receipt Date: 20220917
  Transmission Date: 20221027
  Serious: No
  Sender: FDA-Public Use
  Company Number: US-LUPIN PHARMACEUTICALS INC.-2021-25437

PATIENT
  Sex: Female

DRUGS (1)
  1. ALBUTEROL SULFATE [Suspect]
     Active Substance: ALBUTEROL SULFATE
     Indication: Wheezing
     Dosage: UNK, PRN

REACTIONS (5)
  - Off label use [Unknown]
  - Device deposit issue [Unknown]
  - Product lot number issue [Unknown]
  - Wrong technique in product usage process [Unknown]
  - No adverse event [Unknown]
